FAERS Safety Report 4552087-3 (Version None)
Quarter: 2005Q1

REPORT INFORMATION
  Report Type: 
  Country: None (occurrence: None)
  Receive Date: 20050112
  Receipt Date: 20050104
  Transmission Date: 20050727
  Serious: Yes (Death, Hospitalization)
  Sender: FDA-Public Use
  Company Number: F03200500002

PATIENT
  Age: 74 Year
  Sex: Female
  Weight: 61.2356 kg

DRUGS (4)
  1. OXALIPLATIN [Suspect]
     Indication: NON-HODGKIN'S LYMPHOMA
     Dosage: 100 MG/M2 Q2W, INTRAVENOUS NOS
     Route: 042
     Dates: start: 20041108, end: 20041108
  2. GEMCITABINE - SOLUTION [Suspect]
     Indication: NON-HODGKIN'S LYMPHOMA
     Dosage: 750 MG/M2 Q2W - INTRAVENOUS NOS
     Route: 042
     Dates: start: 20041108, end: 20041108
  3. RITUXAM - RITUXIMAB [Suspect]
     Indication: NON-HODGKIN'S LYMPHOMA
     Dosage: 375 MG/M2 W2W
     Dates: start: 20041108, end: 20041108
  4. PEGFILGRASTIM [Suspect]
     Indication: NON-HODGKIN'S LYMPHOMA
     Dosage: 6 MG/M2 Q2W - SUBCUTANEOUS
     Route: 058
     Dates: start: 20041108, end: 20041108

REACTIONS (15)
  - ACTIVITIES OF DAILY LIVING IMPAIRED [None]
  - ATELECTASIS [None]
  - BLOOD PRESSURE DECREASED [None]
  - DIARRHOEA [None]
  - EFFUSION [None]
  - GENERAL PHYSICAL HEALTH DETERIORATION [None]
  - LUNG DISORDER [None]
  - LUNG INFILTRATION [None]
  - NAUSEA [None]
  - NEUTROPENIA [None]
  - PNEUMONIA [None]
  - PSEUDOMONAL SEPSIS [None]
  - PULMONARY FIBROSIS [None]
  - PULMONARY TOXICITY [None]
  - RESTRICTIVE PULMONARY DISEASE [None]
